FAERS Safety Report 11417779 (Version 2)
Quarter: 2015Q3

REPORT INFORMATION
  Report Type: Spontaneous
  Country: ES (occurrence: ES)
  Receive Date: 20150825
  Receipt Date: 20150914
  Transmission Date: 20151125
  Serious: Yes (Hospitalization)
  Sender: FDA-Public Use
  Company Number: ES-IMPAX LABORATORIES, INC-2015-IPXL-00873

PATIENT
  Age: 59 Year
  Sex: Male

DRUGS (1)
  1. CABERGOLINE. [Suspect]
     Active Substance: CABERGOLINE
     Indication: PROLACTINOMA
     Dosage: 1 MGR, 1 /WEEK
     Route: 065

REACTIONS (1)
  - Brain herniation [Recovering/Resolving]
